FAERS Safety Report 21140376 (Version 7)
Quarter: 2023Q4

REPORT INFORMATION
  Report Type: Other
  Country: DE (occurrence: None)
  Receive Date: 20220728
  Receipt Date: 20231124
  Transmission Date: 20240110
  Serious: No
  Sender: FDA-Public Use
  Company Number: DE-ROCHE-3147687

PATIENT
  Age: 35 Year
  Sex: Female
  Weight: 70 kg

DRUGS (23)
  1. OCREVUS [Suspect]
     Active Substance: OCRELIZUMAB
     Indication: Relapsing multiple sclerosis
     Route: 042
     Dates: start: 20181203, end: 20181217
  2. OCREVUS [Suspect]
     Active Substance: OCRELIZUMAB
     Route: 042
     Dates: start: 20190618, end: 20220217
  3. OCREVUS [Suspect]
     Active Substance: OCRELIZUMAB
     Route: 042
     Dates: start: 20230223
  4. DIMETHINDENE MALEATE [Concomitant]
     Active Substance: DIMETHINDENE MALEATE
     Indication: Premedication
     Route: 042
     Dates: start: 20181203, end: 20181217
  5. DIMETHINDENE MALEATE [Concomitant]
     Active Substance: DIMETHINDENE MALEATE
     Route: 042
     Dates: start: 20190618
  6. CEFUROXIME [Concomitant]
     Active Substance: CEFUROXIME
     Indication: Pyrexia
     Route: 048
     Dates: start: 20231116
  7. CEFUROXIME [Concomitant]
     Active Substance: CEFUROXIME
     Route: 042
     Dates: start: 20231111, end: 20231115
  8. METHYPRED [Concomitant]
     Indication: Premedication
     Route: 042
     Dates: start: 20190618
  9. METHYPRED [Concomitant]
     Route: 042
     Dates: start: 20181203, end: 20181217
  10. ALBUTEROL [Concomitant]
     Active Substance: ALBUTEROL
     Indication: Influenza
     Dates: start: 202212, end: 20230101
  11. FERROUS GLYCINE SULFATE [Concomitant]
     Active Substance: FERROUS GLYCINE SULFATE
     Indication: Microcytic anaemia
     Route: 048
     Dates: start: 20231111
  12. IVY EXTRACT [Concomitant]
     Active Substance: IVY EXTRACT
     Indication: Cough
     Dosage: DEFINITION OF THE INTERVAL: AS REQUIRED
     Route: 048
     Dates: start: 20220724, end: 20220804
  13. CEFPODOXIME [Concomitant]
     Active Substance: CEFPODOXIME
     Indication: Sinusitis
     Route: 048
     Dates: start: 20220805, end: 20220812
  14. CEFPODOXIME [Concomitant]
     Active Substance: CEFPODOXIME
     Dates: start: 20221215, end: 20221224
  15. SPIKEVAX (ELASOMERAN) [Concomitant]
     Active Substance: ELASOMERAN
     Indication: COVID-19 prophylaxis
     Route: 030
     Dates: start: 20220109, end: 20220109
  16. FOSFOMYCIN [Concomitant]
     Active Substance: FOSFOMYCIN
     Indication: Urinary tract infection
     Route: 048
     Dates: start: 20230220, end: 20230220
  17. COMIRNATY (TOZINAMERAN) [Concomitant]
     Active Substance: TOZINAMERAN
     Indication: COVID-19 prophylaxis
     Route: 030
     Dates: start: 20210701, end: 20210701
  18. COMIRNATY (TOZINAMERAN) [Concomitant]
     Active Substance: TOZINAMERAN
     Route: 030
     Dates: start: 20210520, end: 20210520
  19. COMIRNATY (TOZINAMERAN) [Concomitant]
     Active Substance: TOZINAMERAN
     Route: 030
     Dates: start: 20220711, end: 20220711
  20. XYLOMETAZOLINE HYDROCHLORIDE [Concomitant]
     Active Substance: XYLOMETAZOLINE HYDROCHLORIDE
     Indication: Sinusitis
     Dosage: DEFINITION OF THE INTERVAL: AS REQUIRED
     Route: 045
     Dates: start: 20231111
  21. SERTRALINE HYDROCHLORIDE [Concomitant]
     Active Substance: SERTRALINE HYDROCHLORIDE
     Indication: Phobic postural vertigo
     Route: 048
     Dates: start: 20230320
  22. CHOLECALCIFEROL [Concomitant]
     Active Substance: CHOLECALCIFEROL
     Indication: Vitamin D deficiency
     Route: 048
     Dates: start: 2015
  23. ESCITALOPRAM [Concomitant]
     Active Substance: ESCITALOPRAM OXALATE
     Indication: Depression
     Route: 048
     Dates: start: 20150629

REACTIONS (3)
  - Sinusitis [Recovered/Resolved]
  - COVID-19 [Recovered/Resolved]
  - Sinusitis [Not Recovered/Not Resolved]

NARRATIVE: CASE EVENT DATE: 20220724
